FAERS Safety Report 10080293 (Version 2)
Quarter: 2014Q2

REPORT INFORMATION
  Report Type: Spontaneous
  Country: US (occurrence: US)
  Receive Date: 20140415
  Receipt Date: 20140415
  Transmission Date: 20141212
  Serious: No
  Sender: FDA-Public Use
  Company Number: US-GILEAD-2014-0098460

PATIENT
  Age: 61 Year
  Sex: Female

DRUGS (2)
  1. SOFOSBUVIR [Suspect]
     Indication: HEPATITIS C
     Dosage: UNK
     Route: 065
  2. RIBAVIRIN [Concomitant]

REACTIONS (1)
  - Peripheral swelling [Unknown]
